FAERS Safety Report 20401239 (Version 2)
Quarter: 2022Q1

REPORT INFORMATION
  Report Type: Spontaneous
  Country: US (occurrence: US)
  Receive Date: 20220131
  Receipt Date: 20220201
  Transmission Date: 20220423
  Serious: No
  Sender: FDA-Public Use
  Company Number: US-ABBVIE-21K-163-3958004-00

PATIENT
  Age: 59 Year
  Sex: Male
  Weight: 90.800 kg

DRUGS (5)
  1. HUMIRA [Suspect]
     Active Substance: ADALIMUMAB
     Indication: Rheumatoid arthritis
     Route: 058
     Dates: start: 2019
  2. COVID-19 VACCINE [Concomitant]
     Indication: COVID-19 immunisation
     Dosage: FIRST DOSE, MODERNA
     Route: 030
     Dates: start: 20210304, end: 20210304
  3. COVID-19 VACCINE [Concomitant]
     Dosage: SECOND DOSE,MODERNA
     Route: 030
     Dates: start: 20210401, end: 20210401
  4. FOLIC ACID [Concomitant]
     Active Substance: FOLIC ACID
     Indication: Liver disorder
  5. PREDNISONE [Concomitant]
     Active Substance: PREDNISONE
     Indication: Steroid therapy

REACTIONS (3)
  - Injection site pain [Recovered/Resolved]
  - Injection site pain [Recovered/Resolved]
  - Device issue [Unknown]

NARRATIVE: CASE EVENT DATE: 20210604
